FAERS Safety Report 7590486-6 (Version None)
Quarter: 2011Q3

REPORT INFORMATION
  Report Type: 
  Country: None (occurrence: None)
  Receive Date: 20110705
  Receipt Date: 20110621
  Transmission Date: 20111222
  Serious: Yes (Other)
  Sender: FDA-Public Use
  Company Number: US-SANOFI-AVENTIS-2011SA041493

PATIENT
  Sex: Female

DRUGS (4)
  1. NOVOLOG [Concomitant]
  2. LANTUS [Suspect]
     Route: 058
  3. ANTINEOPLASTIC AGENTS [Suspect]
     Indication: BREAST CANCER
     Route: 065
  4. SOLOSTAR [Suspect]

REACTIONS (3)
  - BREAST CANCER [None]
  - BLOOD POTASSIUM DECREASED [None]
  - BLOOD GLUCOSE INCREASED [None]
